FAERS Safety Report 17445144 (Version 10)
Quarter: 2023Q4

REPORT INFORMATION
  Report Type: Spontaneous
  Country: US (occurrence: US)
  Receive Date: 20200221
  Receipt Date: 20231026
  Transmission Date: 20240110
  Serious: No
  Sender: FDA-Public Use
  Company Number: US-PFIZER INC-2020076687

PATIENT
  Age: 65 Year
  Sex: Male

DRUGS (3)
  1. XELJANZ [Suspect]
     Active Substance: TOFACITINIB CITRATE
     Indication: Colitis ulcerative
     Dosage: 10 MG
     Route: 048
  2. XELJANZ [Suspect]
     Active Substance: TOFACITINIB CITRATE
     Dosage: 15 MG, DAILY (TWO TABLETS OF 5 MG IN MORNING AND ONE TABLET OF 5 MG IN EVENING)
     Route: 048
  3. XELJANZ [Suspect]
     Active Substance: TOFACITINIB CITRATE
     Dosage: 10 MG, 2X/DAY (2 TABLETS TWICE A DAY)

REACTIONS (6)
  - Condition aggravated [Unknown]
  - Influenza [Unknown]
  - Malaise [Unknown]
  - Disease recurrence [Unknown]
  - Off label use [Unknown]
  - Circumstance or information capable of leading to medication error [Unknown]

NARRATIVE: CASE EVENT DATE: 20200219
